FAERS Safety Report 10067701 (Version 3)
Quarter: 2014Q2

REPORT INFORMATION
  Report Type: Spontaneous
  Country: US (occurrence: None)
  Receive Date: 20140407
  Receipt Date: 20140527
  Transmission Date: 20141212
  Serious: Yes (Hospitalization)
  Sender: FDA-Public Use
  Company Number: UTC-046653

PATIENT
  Age: 55 Year
  Sex: Female
  Weight: 106.6 kg

DRUGS (2)
  1. REMODULIN [Suspect]
     Indication: COR PULMONALE CHRONIC
     Dosage: 25.92 UG/KG (0.018 UG/KG, 1 IN 1 MIN), INTRAVENOUS DRIP
     Route: 058
     Dates: start: 20131211
  2. FLOLAN (EPOPROSTENOL) [Concomitant]

REACTIONS (3)
  - Fluid retention [None]
  - Hypotension [None]
  - Weight increased [None]
